FAERS Safety Report 9760365 (Version 1)
Quarter: 2013Q4

REPORT INFORMATION
  Report Type: Spontaneous
  Country: US (occurrence: US)
  Receive Date: 20131216
  Receipt Date: 20131216
  Transmission Date: 20140711
  Serious: No
  Sender: FDA-Public Use
  Company Number: US-GILEAD-2010-0029569

PATIENT
  Sex: Female
  Weight: 86.18 kg

DRUGS (13)
  1. LETAIRIS [Suspect]
     Indication: PULMONARY ARTERIAL HYPERTENSION
     Route: 048
     Dates: start: 20080317
  2. DARVOCET [Concomitant]
  3. FUROSEMIDE [Concomitant]
  4. OXYGEN [Concomitant]
  5. FLUTICASONE [Concomitant]
  6. VENTOLIN [Concomitant]
  7. HYDROXYZINE [Concomitant]
  8. SYNTHROID [Concomitant]
  9. APRI [Concomitant]
  10. ADVAIR [Concomitant]
  11. DAILY MULTIVITAMIN [Concomitant]
  12. CLONAZEPAM [Concomitant]
  13. XOPENEX HFA [Concomitant]

REACTIONS (3)
  - Flatulence [Unknown]
  - Constipation [Unknown]
  - Abdominal pain upper [Unknown]
